FAERS Safety Report 14477110 (Version 1)
Quarter: 2018Q1

REPORT INFORMATION
  Report Type: Report from Study
  Country: US (occurrence: US)
  Receive Date: 20180201
  Receipt Date: 20180201
  Transmission Date: 20180509
  Serious: No
  Sender: FDA-Public Use
  Company Number: US-EXELIXIS-CABO-17008659

PATIENT
  Sex: Male

DRUGS (14)
  1. PROPIONATE [Concomitant]
  2. DIPHENOXYLATE HCL [Concomitant]
  3. FLUTICASONE. [Concomitant]
     Active Substance: FLUTICASONE
  4. BUDESONIDE. [Concomitant]
     Active Substance: BUDESONIDE
  5. LISINOPRIL. [Concomitant]
     Active Substance: LISINOPRIL
  6. CABOMETYX [Suspect]
     Active Substance: CABOZANTINIB S-MALATE
     Indication: RENAL CANCER
     Dosage: 40 MG, QD
     Route: 048
  7. ALOGLIPTIN BENZOATE [Concomitant]
     Active Substance: ALOGLIPTIN BENZOATE
  8. OMEPRAZOLE. [Concomitant]
     Active Substance: OMEPRAZOLE
  9. ASPIRIN. [Concomitant]
     Active Substance: ASPIRIN
  10. ATORVASTATIN [Concomitant]
     Active Substance: ATORVASTATIN
  11. INSULIN [Concomitant]
     Active Substance: INSULIN NOS
  12. LEVOTHYROXINE. [Concomitant]
     Active Substance: LEVOTHYROXINE
  13. METOPROLOL. [Concomitant]
     Active Substance: METOPROLOL
  14. CELECOXIB. [Concomitant]
     Active Substance: CELECOXIB

REACTIONS (1)
  - Blood pressure inadequately controlled [Unknown]
